FAERS Safety Report 4911605-3 (Version None)
Quarter: 2006Q1

REPORT INFORMATION
  Report Type: 
  Country: None (occurrence: None)
  Receive Date: 20060214
  Receipt Date: 20051018
  Transmission Date: 20060701
  Serious: Yes (Hospitalization, Other)
  Sender: FDA-Public Use
  Company Number: US-MERCK-0510USA08413

PATIENT
  Age: 40 Year
  Sex: Male
  Weight: 80 kg

DRUGS (4)
  1. VIOXX [Suspect]
     Indication: RHEUMATOID ARTHRITIS
     Route: 048
     Dates: end: 20040901
  2. ALPRAZOLAM [Concomitant]
     Route: 065
  3. TOPROL-XL [Concomitant]
     Route: 065
  4. VIAGRA [Concomitant]
     Route: 065

REACTIONS (17)
  - ARTERIOSCLEROSIS CORONARY ARTERY [None]
  - BACK PAIN [None]
  - CARDIOVASCULAR DISORDER [None]
  - CEREBROVASCULAR ACCIDENT [None]
  - CORONARY ARTERY DISEASE [None]
  - CORONARY ARTERY STENOSIS [None]
  - DEAFNESS [None]
  - DEAFNESS UNILATERAL [None]
  - DEPRESSION [None]
  - HEADACHE [None]
  - HEART INJURY [None]
  - HEPATIC TRAUMA [None]
  - HEPATITIS B [None]
  - MYOCARDIAL INFARCTION [None]
  - PULMONARY EMBOLISM [None]
  - RENAL INJURY [None]
  - SACROILIITIS [None]
